FAERS Safety Report 9624618 (Version 1)
Quarter: 2013Q4

REPORT INFORMATION
  Report Type: Spontaneous
  Country: US (occurrence: US)
  Receive Date: 20131015
  Receipt Date: 20131015
  Transmission Date: 20140711
  Serious: Yes (Death)
  Sender: FDA-Public Use
  Company Number: US-PFIZER INC-2013293624

PATIENT
  Age: 90 Year
  Sex: Male

DRUGS (6)
  1. XALKORI [Suspect]
     Indication: COLON CANCER
     Dosage: 250 MG, 2X/DAY
     Route: 048
     Dates: start: 20120705
  2. XALKORI [Suspect]
     Indication: LUNG NEOPLASM MALIGNANT
  3. ASPIRIN [Concomitant]
     Dosage: UNK
  4. HUMALOG [Concomitant]
     Dosage: UNK
  5. LANTUS [Concomitant]
     Dosage: UNK
  6. VITAMIN C [Concomitant]
     Dosage: UNK

REACTIONS (2)
  - Off label use [Fatal]
  - Death [Fatal]
